FAERS Safety Report 5745522-6 (Version None)
Quarter: 2008Q2

REPORT INFORMATION
  Report Type: 
  Country: None (occurrence: None)
  Receive Date: 20080521
  Receipt Date: 20080514
  Transmission Date: 20081010
  Serious: Yes (Other)
  Sender: FDA-Public Use
  Company Number: US-ASTRAZENECA-2008UW09989

PATIENT
  Sex: Female

DRUGS (1)
  1. ARIMIDEX [Suspect]
     Indication: BREAST CANCER
     Route: 048
     Dates: start: 20080221, end: 20080410

REACTIONS (9)
  - ARTHRALGIA [None]
  - COORDINATION ABNORMAL [None]
  - GAIT DISTURBANCE [None]
  - HOT FLUSH [None]
  - HYPOAESTHESIA [None]
  - MUSCULOSKELETAL STIFFNESS [None]
  - NIGHT SWEATS [None]
  - OEDEMA PERIPHERAL [None]
  - PAIN [None]
